FAERS Safety Report 19479262 (Version 1)
Quarter: 2021Q2

REPORT INFORMATION
  Report Type: Spontaneous
  Country: JP (occurrence: JP)
  Receive Date: 20210630
  Receipt Date: 20210630
  Transmission Date: 20210717
  Serious: Yes (Hospitalization, Other)
  Sender: FDA-Public Use
  Company Number: JP-BRISTOL-MYERS SQUIBB COMPANY-BMS-2021-002893

PATIENT
  Age: 64 Year
  Sex: Male
  Weight: 73 kg

DRUGS (6)
  1. YERVOY [Suspect]
     Active Substance: IPILIMUMAB
     Indication: NON-SMALL CELL LUNG CANCER
     Dosage: 78 MILLIGRAM, ONE TIME DOSE
     Route: 041
     Dates: start: 20201222, end: 20201222
  2. TAMSULOSIN HYDROCHLORIDE. [Concomitant]
     Active Substance: TAMSULOSIN HYDROCHLORIDE
     Indication: PRODUCT USED FOR UNKNOWN INDICATION
     Dosage: 0.2 MILLIGRAM, QD
     Route: 048
  3. OPDIVO [Suspect]
     Active Substance: NIVOLUMAB
     Indication: NON-SMALL CELL LUNG CANCER
     Dosage: 360 MILLIGRAM, ONE TIME DOSE
     Route: 041
     Dates: start: 20201222, end: 20201222
  4. CARBOPLATIN. [Concomitant]
     Active Substance: CARBOPLATIN
     Indication: NON-SMALL CELL LUNG CANCER
     Dosage: 500 MILLIGRAM
     Route: 041
     Dates: start: 20201222
  5. THYRADIN S [Concomitant]
     Active Substance: LEVOTHYROXINE SODIUM
     Indication: PRODUCT USED FOR UNKNOWN INDICATION
     Dosage: 150 MICROGRAM, Q8H
     Route: 048
  6. PEMETREXED DISODIUM [Concomitant]
     Active Substance: PEMETREXED DISODIUM
     Indication: NON-SMALL CELL LUNG CANCER
     Dosage: 1000 MILLIGRAM
     Route: 041
     Dates: start: 20201222

REACTIONS (7)
  - Hepatic function abnormal [Recovered/Resolved]
  - Pyrexia [Unknown]
  - Disseminated intravascular coagulation [Unknown]
  - Platelet count decreased [Recovered/Resolved]
  - Erythema [Recovered/Resolved]
  - Cholangitis sclerosing [Unknown]
  - Pneumonia [Unknown]

NARRATIVE: CASE EVENT DATE: 20210104
